FAERS Safety Report 17833628 (Version 1)
Quarter: 2020Q2

REPORT INFORMATION
  Report Type: Spontaneous
  Country: US (occurrence: US)
  Receive Date: 20200528
  Receipt Date: 20200528
  Transmission Date: 20200714
  Serious: No
  Sender: FDA-Public Use
  Company Number: US-009507513-2005USA008820

PATIENT
  Age: 73 Year
  Sex: Male

DRUGS (9)
  1. ALBUTEROL SULFATE. [Suspect]
     Active Substance: ALBUTEROL SULFATE
     Indication: DYSPNOEA
     Dosage: UNK
     Dates: start: 202001
  2. DOXAZOSIN [Concomitant]
     Active Substance: DOXAZOSIN MESYLATE
     Dosage: UNK
  3. POTASSIUM (UNSPECIFIED) [Concomitant]
     Active Substance: POTASSIUM
     Dosage: UNK
  4. ALBUTEROL SULFATE. [Suspect]
     Active Substance: ALBUTEROL SULFATE
     Dosage: UNK
     Dates: start: 2017
  5. FUROSEMIDE. [Concomitant]
     Active Substance: FUROSEMIDE
     Dosage: UNK
  6. PANTOPRAZOLE [Concomitant]
     Active Substance: PANTOPRAZOLE
     Dosage: UNK
  7. WARFARIN [Concomitant]
     Active Substance: WARFARIN
     Dosage: UNK
  8. LOSARTAN POTASSIUM. [Concomitant]
     Active Substance: LOSARTAN POTASSIUM
     Dosage: UNK
  9. PRAVASTATIN. [Concomitant]
     Active Substance: PRAVASTATIN
     Dosage: UNK

REACTIONS (4)
  - Poor quality device used [Unknown]
  - Product dose omission [Unknown]
  - Product quality issue [Unknown]
  - Product use issue [Unknown]

NARRATIVE: CASE EVENT DATE: 202001
